FAERS Safety Report 19459494 (Version 1)
Quarter: 2021Q2

REPORT INFORMATION
  Report Type: Spontaneous
  Country: US (occurrence: US)
  Receive Date: 20210624
  Receipt Date: 20210624
  Transmission Date: 20210717
  Serious: Yes (Death, Hospitalization)
  Sender: FDA-Public Use
  Company Number: US-TEVA-2021-US-1924635

PATIENT
  Age: 29 Year
  Sex: Male

DRUGS (6)
  1. ESCITALOPRAM [Concomitant]
     Active Substance: ESCITALOPRAM OXALATE
     Indication: ACUTE PSYCHOSIS
     Dosage: 10 MILLIGRAM DAILY;
     Route: 065
  2. PALIPERIDONE. [Concomitant]
     Active Substance: PALIPERIDONE
     Indication: DELUSION
     Route: 065
  3. CARBAMAZEPINE. [Concomitant]
     Active Substance: CARBAMAZEPINE
     Indication: SUICIDAL IDEATION
  4. PALIPERIDONE. [Concomitant]
     Active Substance: PALIPERIDONE
     Indication: SUICIDAL IDEATION
  5. CARBAMAZEPINE. [Concomitant]
     Active Substance: CARBAMAZEPINE
     Indication: DELUSION
     Route: 065
  6. VALPROIC ACID. [Suspect]
     Active Substance: VALPROIC ACID
     Indication: ACUTE PSYCHOSIS
     Dosage: 1000 MILLIGRAM DAILY;
     Route: 065

REACTIONS (3)
  - Lactic acidosis [Recovered/Resolved]
  - Hyperammonaemic encephalopathy [Fatal]
  - Unmasking of previously unidentified disease [Unknown]
